FAERS Safety Report 7490885-7 (Version None)
Quarter: 2011Q2

REPORT INFORMATION
  Report Type: 
  Country: None (occurrence: None)
  Receive Date: 20110519
  Receipt Date: 20110516
  Transmission Date: 20111010
  Serious: Yes (Hospitalization)
  Sender: FDA-Public Use
  Company Number: FR-ABBOTT-11P-056-0726102-00

PATIENT
  Sex: Male

DRUGS (10)
  1. FOLIC ACID [Concomitant]
     Indication: PRODUCT USED FOR UNKNOWN INDICATION
     Route: 048
     Dates: start: 20050101
  2. PAROXETINE HYDROCHLORIDE [Suspect]
     Indication: PRODUCT USED FOR UNKNOWN INDICATION
     Route: 048
     Dates: start: 20020101, end: 20100925
  3. KEPPRA [Concomitant]
     Indication: PRODUCT USED FOR UNKNOWN INDICATION
     Route: 048
     Dates: start: 20090101
  4. TERCIAN [Concomitant]
     Indication: PRODUCT USED FOR UNKNOWN INDICATION
     Route: 048
  5. HALDOL RETARD [Concomitant]
     Indication: PRODUCT USED FOR UNKNOWN INDICATION
     Route: 048
     Dates: start: 19990101
  6. FENOFIBRATE [Suspect]
     Indication: PRODUCT USED FOR UNKNOWN INDICATION
     Route: 048
     Dates: start: 20060401, end: 20100910
  7. CARBAMAZEPINE [Suspect]
     Indication: PRODUCT USED FOR UNKNOWN INDICATION
     Route: 048
     Dates: end: 20100916
  8. PARKINANE [Concomitant]
     Indication: PRODUCT USED FOR UNKNOWN INDICATION
     Route: 048
  9. CARBAMAZEPINE [Suspect]
     Route: 048
     Dates: end: 20100916
  10. MILICAL 45/MINCEUR [Concomitant]
     Indication: PRODUCT USED FOR UNKNOWN INDICATION
     Route: 048
     Dates: start: 20100101

REACTIONS (11)
  - ACUTE PULMONARY OEDEMA [None]
  - HYPOGAMMAGLOBULINAEMIA [None]
  - PULMONARY ALVEOLAR HAEMORRHAGE [None]
  - BLOOD FOLLICLE STIMULATING HORMONE INCREASED [None]
  - GENERALISED OEDEMA [None]
  - HYPOVITAMINOSIS [None]
  - HYPOALBUMINAEMIA [None]
  - BLOOD LUTEINISING HORMONE INCREASED [None]
  - HYPERTENSION [None]
  - HYPERPROLACTINAEMIA [None]
  - BLOOD IRON DECREASED [None]
